FAERS Safety Report 5441847-2 (Version None)
Quarter: 2007Q3

REPORT INFORMATION
  Report Type: 
  Country: None (occurrence: None)
  Receive Date: 20070904
  Receipt Date: 20070823
  Transmission Date: 20080115
  Serious: Yes (Other)
  Sender: FDA-Public Use
  Company Number: BE-ELI_LILLY_AND_COMPANY-BE200708005261

PATIENT
  Age: 67 Year
  Sex: Female

DRUGS (13)
  1. CYMBALTA [Suspect]
     Indication: DEPRESSION
     Dosage: 60 MG, DAILY (1/D)
     Dates: start: 20070821
  2. CYMBALTA [Suspect]
     Dates: start: 20070822
  3. AMLODIPINE BESYLATE [Concomitant]
     Indication: HYPERTENSION
     Dosage: 5 MG, DAILY (1/D)
  4. ZANTAC 150 [Concomitant]
     Indication: PROPHYLAXIS
     Dosage: 150 MG, UNK
  5. LYSOMUCIL [Concomitant]
  6. DEPAKENE [Concomitant]
  7. KREDEX [Concomitant]
     Indication: HYPERTENSION
  8. IRBESARTAN [Concomitant]
  9. EUTHYROX [Concomitant]
     Dosage: 100 UG, DAILY (1/D)
  10. FRAXIPARINE [Concomitant]
  11. MOVICOL [Concomitant]
  12. CIPROFLOXACIN [Concomitant]
     Indication: URINARY TRACT INFECTION
     Dosage: 500 MG, DAILY (1/D)
     Dates: end: 20070822
  13. REDOMEX [Concomitant]
     Dosage: 25 MG, UNK
     Dates: start: 20070822

REACTIONS (2)
  - COMA [None]
  - SYNCOPE [None]
